FAERS Safety Report 14633076 (Version 1)
Quarter: 2018Q1

REPORT INFORMATION
  Report Type: Spontaneous
  Country: US (occurrence: US)
  Receive Date: 20180313
  Receipt Date: 20180313
  Transmission Date: 20180509
  Serious: Yes (Other)
  Sender: FDA-Public Use
  Company Number: US-ALKERMES INC.-ALK-2018-001373

PATIENT
  Age: 36 Year
  Sex: Female

DRUGS (1)
  1. ARISTADA [Suspect]
     Active Substance: ARIPIPRAZOLE LAUROXIL
     Indication: SCHIZOPHRENIA
     Dosage: 1064 MG, Q8WK
     Route: 030
     Dates: start: 20170929

REACTIONS (5)
  - Tremor [Not Recovered/Not Resolved]
  - Cervix carcinoma [Not Recovered/Not Resolved]
  - Stress [Not Recovered/Not Resolved]
  - Intervertebral disc protrusion [Not Recovered/Not Resolved]
  - Muscle spasms [Not Recovered/Not Resolved]

NARRATIVE: CASE EVENT DATE: 201801
